FAERS Safety Report 9241636 (Version 2)
Quarter: 2013Q2

REPORT INFORMATION
  Report Type: Report from Study
  Country: PL (occurrence: PL)
  Receive Date: 20130419
  Receipt Date: 20130531
  Transmission Date: 20140414
  Serious: Yes (Hospitalization)
  Sender: FDA-Public Use
  Company Number: PL-BIOGENIDEC-2011BI049015

PATIENT
  Age: 42 Year
  Sex: Male
  Weight: 69 kg

DRUGS (9)
  1. BG00012 [Suspect]
     Indication: MULTIPLE SCLEROSIS
     Dates: start: 20110125, end: 20111021
  2. CONTROLOC [Concomitant]
     Indication: IRRITABLE BOWEL SYNDROME
     Route: 048
     Dates: start: 20091008
  3. DUSPATALIN [Concomitant]
     Indication: IRRITABLE BOWEL SYNDROME
     Route: 048
     Dates: start: 201007
  4. FIBRAXINE [Concomitant]
     Indication: CONSTIPATION
     Route: 048
     Dates: start: 20110310
  5. ULGIX [Concomitant]
     Indication: FLATULENCE
     Route: 048
     Dates: start: 20110415
  6. DICORTINEF [Concomitant]
     Indication: CONJUNCTIVITIS
     Dates: start: 20110509
  7. VICEBROL [Concomitant]
     Indication: VERTIGO
     Route: 048
     Dates: start: 20110613
  8. UNIDOX [Concomitant]
     Indication: FOLLICULITIS
     Route: 048
     Dates: start: 20110625
  9. MAXIGRA [Concomitant]
     Indication: SEXUAL DYSFUNCTION
     Route: 048
     Dates: start: 20101229

REACTIONS (1)
  - Surgery [Recovered/Resolved]
